FAERS Safety Report 15821311 (Version 2)
Quarter: 2019Q1

REPORT INFORMATION
  Report Type: Report from Study
  Country: GB (occurrence: GB)
  Receive Date: 20190114
  Receipt Date: 20190208
  Transmission Date: 20190417
  Serious: Yes (Other)
  Sender: FDA-Public Use
  Company Number: GB-PFIZER INC-2019016800

PATIENT
  Age: 69 Year
  Sex: Male

DRUGS (2)
  1. SUTENT [Suspect]
     Active Substance: SUNITINIB MALATE
     Indication: METASTATIC RENAL CELL CARCINOMA
     Dosage: 37.5 MG, 1X/DAY (CYCLIC)
     Route: 048
     Dates: start: 20181029
  2. SUTENT [Suspect]
     Active Substance: SUNITINIB MALATE
     Dosage: 50 MG, CYCLIC ( ONCE A DAY 2:1 RATIO)

REACTIONS (6)
  - Vomiting [Recovered/Resolved]
  - Oral pain [Not Recovered/Not Resolved]
  - Eye infection [Recovered/Resolved]
  - Gastric disorder [Recovering/Resolving]
  - Phimosis [Recovered/Resolved]
  - Diarrhoea [Recovered/Resolved]

NARRATIVE: CASE EVENT DATE: 20181225
